FAERS Safety Report 14691296 (Version 2)
Quarter: 2018Q2

REPORT INFORMATION
  Report Type: Spontaneous
  Country: IT (occurrence: IT)
  Receive Date: 20180328
  Receipt Date: 20180412
  Transmission Date: 20180711
  Serious: Yes (Other)
  Sender: FDA-Public Use
  Company Number: IT-EXELIXIS-CABO-18013039

PATIENT
  Sex: Male

DRUGS (6)
  1. ALDACTONE [Concomitant]
     Active Substance: SPIRONOLACTONE
     Indication: HYPERTENSION
  2. PREDNISONE. [Concomitant]
     Active Substance: PREDNISONE
     Indication: INCREASED APPETITE
  3. FUROSEMIDE. [Concomitant]
     Active Substance: FUROSEMIDE
     Indication: HYPERTENSION
  4. ASPIRIN CARDIO [Concomitant]
     Active Substance: ASPIRIN
     Indication: CARDIOVASCULAR EVENT PROPHYLAXIS
  5. GASTRO-PROTECTOR (NOS) [Concomitant]
  6. CABOMETYX [Suspect]
     Active Substance: CABOZANTINIB S-MALATE
     Indication: METASTATIC RENAL CELL CARCINOMA
     Dosage: 40 MG, QD
     Route: 048
     Dates: start: 201802

REACTIONS (11)
  - Hepatic cyst [Unknown]
  - Pericardial effusion [Unknown]
  - Metastases to heart [Unknown]
  - Pleural effusion [Unknown]
  - Laceration [Unknown]
  - Hypo HDL cholesterolaemia [Unknown]
  - Oedema [Unknown]
  - Hypertension [Unknown]
  - Benign prostatic hyperplasia [Unknown]
  - Blood pressure decreased [Unknown]
  - Vasculitis [Unknown]

NARRATIVE: CASE EVENT DATE: 20180305
